FAERS Safety Report 9820856 (Version 3)
Quarter: 2014Q1

REPORT INFORMATION
  Report Type: Spontaneous
  Country: SE (occurrence: SE)
  Receive Date: 20140116
  Receipt Date: 20140213
  Transmission Date: 20141002
  Serious: Yes (Hospitalization, Other)
  Sender: FDA-Public Use
  Company Number: SE-ASTRAZENECA-2013SE21978

PATIENT
  Age: 52 Year
  Sex: Male

DRUGS (6)
  1. MERONEM [Suspect]
     Route: 042
     Dates: start: 20130224, end: 20130301
  2. LEUSTATIN (JANSSEN-CILAG AB) [Suspect]
     Dosage: STRENGHT 1MG/ML, UNKNOWN FREQUENCY
     Route: 065
     Dates: start: 20130218, end: 20130222
  3. BACTRIM FORTE (ROCHE AB) [Concomitant]
     Dosage: 80 MG/160 MG
  4. ALLOPURINOL (RATIOPHARM GMBH) [Concomitant]
  5. VALTREX (GLAXOSMITHKLINE AB) [Concomitant]
  6. VANCOMYCIN [Concomitant]
     Dates: start: 20130227

REACTIONS (4)
  - Pyrexia [Recovered/Resolved]
  - Neutropenia [Recovered/Resolved]
  - Drug eruption [Recovered/Resolved]
  - Nerve degeneration [Not Recovered/Not Resolved]
